FAERS Safety Report 23248736 (Version 1)
Quarter: 2023Q4

REPORT INFORMATION
  Report Type: Spontaneous
  Country: US (occurrence: US)
  Receive Date: 20231201
  Receipt Date: 20231201
  Transmission Date: 20240110
  Serious: Yes (Other)
  Sender: FDA-Public Use
  Company Number: US-ALKEM LABORATORIES LIMITED-US-ALKEM-2023-11133

PATIENT
  Age: 57 Year
  Sex: Female

DRUGS (11)
  1. TACROLIMUS [Suspect]
     Active Substance: TACROLIMUS
     Indication: Immunosuppressant drug therapy
     Dosage: 5 MILLIGRAM
     Route: 065
  2. TACROLIMUS [Suspect]
     Active Substance: TACROLIMUS
     Dosage: UNK, QD (1-2.5 MILLIGRAM DAILY DOSE)
     Route: 065
  3. CIPROFLOXACIN [Suspect]
     Active Substance: CIPROFLOXACIN
     Indication: Mycobacterium haemophilum infection
     Dosage: 500 MILLIGRAM, BID (TWICE A DAILY)
     Route: 048
  4. CIPROFLOXACIN [Suspect]
     Active Substance: CIPROFLOXACIN
     Indication: Skin infection
  5. BECLOMETHASONE [Suspect]
     Active Substance: BECLOMETHASONE
     Indication: Immunosuppressant drug therapy
     Dosage: 20 MILLIGRAM
     Route: 065
  6. BUDESONIDE [Suspect]
     Active Substance: BUDESONIDE
     Indication: Immunosuppressant drug therapy
     Dosage: 6 MILLIGRAM
     Route: 065
  7. CLARITHROMYCIN [Suspect]
     Active Substance: CLARITHROMYCIN
     Indication: Mycobacterium haemophilum infection
     Dosage: 500 MILLIGRAM, BID (TWICE A DAILY)
     Route: 048
  8. CLARITHROMYCIN [Suspect]
     Active Substance: CLARITHROMYCIN
     Indication: Skin infection
  9. PREDNISONE [Suspect]
     Active Substance: PREDNISONE
     Indication: Immunosuppressant drug therapy
     Dosage: 10 MILLIGRAM
     Route: 065
  10. RIFABUTIN [Suspect]
     Active Substance: RIFABUTIN
     Indication: Mycobacterium haemophilum infection
     Dosage: 300 MILLIGRAM, OD (ONCE DAILY)
     Route: 048
  11. RIFABUTIN [Suspect]
     Active Substance: RIFABUTIN
     Indication: Skin infection

REACTIONS (5)
  - Mycobacterium haemophilum infection [Recovered/Resolved]
  - Skin infection [Recovered/Resolved]
  - Cellulitis [Unknown]
  - Chronic graft versus host disease [Unknown]
  - Nausea [Unknown]
